FAERS Safety Report 8551552-1 (Version None)
Quarter: 2012Q3

REPORT INFORMATION
  Report Type: 
  Country: None (occurrence: None)
  Receive Date: 20120730
  Receipt Date: 20120720
  Transmission Date: 20120928
  Serious: Yes (Hospitalization)
  Sender: FDA-Public Use
  Company Number: DE-UCBSA-057842

PATIENT
  Age: 60 Year
  Sex: Male
  Weight: 85 kg

DRUGS (3)
  1. PREDNISOLONE [Concomitant]
     Indication: RHEUMATOID ARTHRITIS
     Route: 048
     Dates: start: 20080101
  2. METHOTREXATE [Concomitant]
     Indication: RHEUMATOID ARTHRITIS
     Route: 048
     Dates: start: 20080101
  3. CIMZIA [Suspect]
     Indication: RHEUMATOID ARTHRITIS
     Dosage: DOSE: 200 MG
     Route: 058
     Dates: start: 20111101, end: 20120504

REACTIONS (1)
  - BRONCHOPNEUMONIA [None]
